FAERS Safety Report 5871628-7 (Version None)
Quarter: 2008Q3

REPORT INFORMATION
  Report Type: 
  Country: None (occurrence: None)
  Receive Date: 20080904
  Receipt Date: 20080904
  Transmission Date: 20090109
  Serious: Yes (Other)
  Sender: FDA-Public Use
  Company Number: None

PATIENT
  Sex: Male
  Weight: 95.2554 kg

DRUGS (1)
  1. FLOMAX [Suspect]
     Indication: PROSTATIC DISORDER
     Dosage: 0.4MG ONCE PER DAY
     Dates: start: 20050101

REACTIONS (4)
  - ANAESTHETIC COMPLICATION [None]
  - DRUG INEFFECTIVE [None]
  - PAIN [None]
  - VISION BLURRED [None]
